FAERS Safety Report 14254272 (Version 1)
Quarter: 2017Q4

REPORT INFORMATION
  Report Type: Spontaneous
  Country: CH (occurrence: CH)
  Receive Date: 20171206
  Receipt Date: 20171206
  Transmission Date: 20180321
  Serious: Yes (Hospitalization, Other)
  Sender: FDA-Public Use
  Company Number: CH-ROCHE-2033365

PATIENT
  Age: 17 Year
  Sex: Female

DRUGS (2)
  1. TISAGENLECLEUCEL. [Suspect]
     Active Substance: TISAGENLECLEUCEL
     Indication: ACUTE LYMPHOCYTIC LEUKAEMIA
     Dosage: UNCERTAINTY
     Route: 065
     Dates: start: 20140715
  2. ACTEMRA [Suspect]
     Active Substance: TOCILIZUMAB
     Indication: CYTOKINE RELEASE SYNDROME
     Route: 065
     Dates: start: 20140722

REACTIONS (11)
  - Neutrophil count decreased [Recovered/Resolved]
  - Lymphopenia [Not Recovered/Not Resolved]
  - Oropharyngeal pain [Unknown]
  - Pyrexia [Recovered/Resolved]
  - Headache [Recovered/Resolved]
  - White blood cell count decreased [Not Recovered/Not Resolved]
  - Abdominal pain lower [Unknown]
  - Visceral congestion [Unknown]
  - Nausea [Unknown]
  - Viral upper respiratory tract infection [Unknown]
  - Atrial thrombosis [Recovered/Resolved]

NARRATIVE: CASE EVENT DATE: 20140811
